FAERS Safety Report 16234647 (Version 1)
Quarter: 2019Q2

REPORT INFORMATION
  Report Type: Report from Study
  Country: US (occurrence: US)
  Receive Date: 20190424
  Receipt Date: 20190424
  Transmission Date: 20190711
  Serious: Yes (Hospitalization)
  Sender: FDA-Public Use
  Company Number: US-EISAI MEDICAL RESEARCH-EC-2019-052911

PATIENT
  Age: 57 Year
  Sex: Male
  Weight: 78 kg

DRUGS (15)
  1. LENVIMA [Suspect]
     Active Substance: LENVATINIB
     Indication: RENAL CANCER
     Route: 048
  2. OXYCODONE HYDROCHLORIDE. [Concomitant]
     Active Substance: OXYCODONE HYDROCHLORIDE
  3. HYDROCORTISONE-ACETIC ACID [Concomitant]
  4. FAMOTIDINE. [Concomitant]
     Active Substance: FAMOTIDINE
  5. PREDNISONE. [Concomitant]
     Active Substance: PREDNISONE
  6. KEPPRA [Concomitant]
     Active Substance: LEVETIRACETAM
  7. AFINITOR [Concomitant]
     Active Substance: EVEROLIMUS
  8. GABAPENTIN. [Concomitant]
     Active Substance: GABAPENTIN
  9. SYNTHROID [Concomitant]
     Active Substance: LEVOTHYROXINE SODIUM
  10. ERYTHROMYCIN-BENZOYL PEROXIDE [Concomitant]
     Active Substance: BENZOYL PEROXIDE\ERYTHROMYCIN
  11. BACTRIM [Concomitant]
     Active Substance: SULFAMETHOXAZOLE\TRIMETHOPRIM
  12. PEPCID [Concomitant]
     Active Substance: FAMOTIDINE
  13. LATANOPROST. [Concomitant]
     Active Substance: LATANOPROST
  14. DORZOLAMIDE-TIMOLOL [Concomitant]
     Active Substance: DORZOLAMIDE\TIMOLOL
  15. BRIMONIDINE [Concomitant]
     Active Substance: BRIMONIDINE TARTRATE

REACTIONS (16)
  - Chest pain [Not Recovered/Not Resolved]
  - Myalgia [Not Recovered/Not Resolved]
  - Pruritus [Unknown]
  - Blood pressure increased [Unknown]
  - Compartment syndrome [Unknown]
  - Wound complication [Unknown]
  - Gait disturbance [Unknown]
  - Impaired healing [Unknown]
  - Deep vein thrombosis [Unknown]
  - Formication [Not Recovered/Not Resolved]
  - Acne [Unknown]
  - Pain [Not Recovered/Not Resolved]
  - Insomnia [Not Recovered/Not Resolved]
  - Fatigue [Not Recovered/Not Resolved]
  - Headache [Not Recovered/Not Resolved]
  - Dry skin [Not Recovered/Not Resolved]

NARRATIVE: CASE EVENT DATE: 2019
